FAERS Safety Report 7465398 (Version 5)
Quarter: 2012Q4

REPORT INFORMATION
  Report Type: 
  Country: US (occurrence: US)
  Receive Date: 20100712
  Receipt Date: 20121220
  Transmission Date: 20130627
  Serious: Yes (Hospitalization, Disabling)
  Sender: FDA-Public Use
  Company Number: US-BAYER-201027051NA

PATIENT
  Age: 43 Year
  Sex: Female
  Weight: 61.22 kg

DRUGS (13)
  1. YAZ [Suspect]
     Indication: ORAL CONTRACEPTION
     Dosage: UNK UNK, UNK
     Route: 048
     Dates: start: 200811, end: 20090324
  2. YAZ [Suspect]
     Indication: HEAVY PERIODS
  3. IBUPROFEN [Concomitant]
  4. TYLENOL [Concomitant]
     Dosage: UNK UNK, PRN
  5. AMOXICILLIN [Concomitant]
     Dosage: 875 mg, BID for 10 days
  6. SENOKOT-S [Concomitant]
  7. CIPROFLOXACIN [Concomitant]
  8. SEROQUEL [Concomitant]
  9. METOPROLOL TARTRATE [Concomitant]
  10. LEVETIRACETAM [Concomitant]
  11. NEXIUM [Concomitant]
  12. VANCOMYCIN [Concomitant]
     Indication: BACTERIAL INFECTION DUE TO STAPHYLOCOCCUS AUREUS
  13. ZOSYN [Concomitant]
     Indication: BACTERIAL INFECTION DUE TO STAPHYLOCOCCUS AUREUS

REACTIONS (20)
  - Haemorrhagic stroke [None]
  - Cerebral venous thrombosis [None]
  - Deep vein thrombosis [None]
  - Injury [None]
  - Hemiparesis [None]
  - Coordination abnormal [None]
  - Fatigue [None]
  - Memory impairment [None]
  - Speech disorder [None]
  - Cognitive disorder [None]
  - Visual impairment [None]
  - Neurological symptom [None]
  - Pain [None]
  - Emotional disorder [None]
  - Anhedonia [None]
  - Pain [None]
  - Headache [None]
  - Nausea [None]
  - Vomiting [None]
  - Hallucination [None]
